FAERS Safety Report 4687777-5 (Version None)
Quarter: 2005Q2

REPORT INFORMATION
  Report Type: 
  Country: None (occurrence: None)
  Receive Date: 20050610
  Receipt Date: 20050602
  Transmission Date: 20051028
  Serious: Yes (Other)
  Sender: FDA-Public Use
  Company Number: 200515155GDDC

PATIENT
  Sex: Female

DRUGS (1)
  1. FLAGYSTATIN [Suspect]
     Indication: INFECTION
     Dosage: DOSE: UNK
     Route: 067
     Dates: start: 20050531, end: 20050601

REACTIONS (1)
  - VAGINAL HAEMORRHAGE [None]
